FAERS Safety Report 26125205 (Version 1)
Quarter: 2025Q4

REPORT INFORMATION
  Report Type: Spontaneous
  Country: US (occurrence: None)
  Receive Date: 20251204
  Receipt Date: 20251204
  Transmission Date: 20260118
  Serious: No
  Sender: FDA-CTU
  Company Number: None

PATIENT
  Age: 45 Year
  Sex: Male

DRUGS (8)
  1. HYFTOR [Suspect]
     Active Substance: SIROLIMUS
     Indication: Tuberous sclerosis complex
     Dosage: FREQUENCY : TWICE A DAY;?STRENGTH:  0.2 %
     Route: 061
     Dates: start: 20250605
  2. CLOBAZAM [Concomitant]
     Active Substance: CLOBAZAM
  3. ENALAPRIL [Concomitant]
     Active Substance: ENALAPRIL
  4. FISH OIL [Concomitant]
     Active Substance: FISH OIL
  5. FLUOXETINE [Concomitant]
     Active Substance: FLUOXETINE HYDROCHLORIDE
  6. LAMOTRIGINE [Concomitant]
     Active Substance: LAMOTRIGINE
  7. LORAZEPAM [Concomitant]
     Active Substance: LORAZEPAM
  8. VIMPAT [Concomitant]
     Active Substance: LACOSAMIDE

REACTIONS (2)
  - Multiple sclerosis [None]
  - Drug effect less than expected [None]

NARRATIVE: CASE EVENT DATE: 20251111
